FAERS Safety Report 4693887-9 (Version None)
Quarter: 2005Q2

REPORT INFORMATION
  Report Type: 
  Country: None (occurrence: None)
  Receive Date: 20050616
  Receipt Date: 20050608
  Transmission Date: 20051028
  Serious: Yes (Life-Threatening)
  Sender: FDA-Public Use
  Company Number: S05-FRA-01494-01

PATIENT
  Age: 96 Year
  Sex: Female

DRUGS (3)
  1. EBIXA (MEMANTINE) [Suspect]
     Indication: DEMENTIA
     Dates: start: 20050128, end: 20050225
  2. FOLIC ACID [Concomitant]
  3. CITALOPRAM [Concomitant]

REACTIONS (4)
  - ABNORMAL BEHAVIOUR [None]
  - ASTHENIA [None]
  - BEDRIDDEN [None]
  - DISTURBANCE IN ATTENTION [None]
